FAERS Safety Report 24972262 (Version 1)
Quarter: 2025Q1

REPORT INFORMATION
  Report Type: Report from Study
  Country: US (occurrence: US)
  Receive Date: 20250214
  Receipt Date: 20250214
  Transmission Date: 20250409
  Serious: Yes (Hospitalization, Other)
  Sender: ABBVIE
  Company Number: US-ABBVIE-6128058

PATIENT
  Age: 30 Year
  Sex: Female

DRUGS (1)
  1. RINVOQ [Suspect]
     Active Substance: UPADACITINIB
     Indication: Crohn^s disease
     Route: 048
     Dates: start: 20240720

REACTIONS (4)
  - Pain [Unknown]
  - Medical device site rash [Not Recovered/Not Resolved]
  - Medical device site erythema [Unknown]
  - Medical device site inflammation [Unknown]

NARRATIVE: CASE EVENT DATE: 20250124
